FAERS Safety Report 4634703-0 (Version None)
Quarter: 2005Q2

REPORT INFORMATION
  Report Type: 
  Country: None (occurrence: None)
  Receive Date: 20050413
  Receipt Date: 20050413
  Transmission Date: 20051028
  Serious: Yes (Life-Threatening, Hospitalization)
  Sender: FDA-Public Use
  Company Number: None

PATIENT
  Age: 80 Year
  Sex: Female

DRUGS (10)
  1. CIPROFLOXACIN [Suspect]
     Indication: PNEUMONIA
     Dosage: 500 MG PO BID
     Route: 048
     Dates: start: 20050225, end: 20050302
  2. AZITHROMYCIN [Suspect]
     Indication: PNEUMONIA
     Dosage: 500 MG QD PO
     Route: 048
     Dates: start: 20040227, end: 20050303
  3. VICODIN [Concomitant]
  4. INSULIN [Concomitant]
  5. POTASSIUM CHLORIDE [Concomitant]
  6. BISACODYL [Concomitant]
  7. DARVOCET [Concomitant]
  8. LORAZEPAM [Concomitant]
  9. HYDROCHLOROTHIAZIDE [Concomitant]
  10. PHENYTOIN [Concomitant]

REACTIONS (3)
  - RASH GENERALISED [None]
  - RASH MACULO-PAPULAR [None]
  - RENAL FAILURE [None]
